FAERS Safety Report 23056561 (Version 3)
Quarter: 2024Q1

REPORT INFORMATION
  Report Type: Report from Study
  Country: ES (occurrence: ES)
  Receive Date: 20231011
  Receipt Date: 20240129
  Transmission Date: 20240409
  Serious: Yes (Hospitalization, Other)
  Sender: FDA-Public Use
  Company Number: ES-ABBVIE-5445422

PATIENT
  Age: 67 Year
  Sex: Female
  Weight: 85 kg

DRUGS (15)
  1. HUMIRA [Suspect]
     Active Substance: ADALIMUMAB
     Indication: Colitis ulcerative
     Route: 058
     Dates: start: 20170518, end: 20180119
  2. ASACOL [Concomitant]
     Active Substance: MESALAMINE
     Indication: Colitis ulcerative
     Dosage: ON DEMAND
     Route: 054
     Dates: start: 20130611
  3. ASACOL [Concomitant]
     Active Substance: MESALAMINE
     Indication: Colitis ulcerative
     Route: 048
     Dates: start: 20230611
  4. SIMVASTATIN [Concomitant]
     Active Substance: SIMVASTATIN
     Indication: Hypercholesterolaemia
     Route: 048
     Dates: start: 20170920
  5. METHOTREXATE [Concomitant]
     Active Substance: METHOTREXATE
     Indication: Colitis ulcerative
     Route: 048
     Dates: start: 20200130
  6. VEDOLIZUMAB [Concomitant]
     Active Substance: VEDOLIZUMAB
     Indication: Colitis ulcerative
     Dosage: WEEK O, 2, 6; AFETER EVERY 8 WEEKS
     Route: 041
     Dates: start: 20200619
  7. CALCIFEDIOL [Concomitant]
     Active Substance: CALCIFEDIOL
     Indication: Colitis ulcerative
     Dosage: 266 MCG
     Route: 048
     Dates: start: 20201029
  8. BUDESONIDE [Concomitant]
     Active Substance: BUDESONIDE
     Indication: Autoimmune hepatitis
     Route: 048
     Dates: start: 20190221
  9. DEFLAZACORT [Concomitant]
     Active Substance: DEFLAZACORT
     Indication: Colitis ulcerative
     Route: 048
     Dates: start: 20220914
  10. MASTICAL D UNIDIA [Concomitant]
     Indication: Colitis ulcerative
     Dosage: 2500/800 MG
     Route: 048
     Dates: start: 20220914
  11. LANSOPRAZOLE [Concomitant]
     Active Substance: LANSOPRAZOLE
     Indication: Colitis ulcerative
     Route: 048
     Dates: start: 20201014
  12. CALCIFEDIOL [Concomitant]
     Active Substance: CALCIFEDIOL
     Indication: Colitis ulcerative
     Dosage: 0.266 MG/1 PER MONTH
     Route: 048
     Dates: start: 20201028
  13. FLATORIL [Concomitant]
     Indication: Colitis ulcerative
     Dosage: TIME INTERVAL: AS NECESSARY: 500/200 MCG
     Route: 048
     Dates: start: 20210915
  14. USTEKINUMAB [Concomitant]
     Active Substance: USTEKINUMAB
     Indication: Colitis ulcerative
     Route: 058
     Dates: start: 20230626
  15. USTEKINUMAB [Concomitant]
     Active Substance: USTEKINUMAB
     Indication: Colitis ulcerative
     Route: 058
     Dates: start: 20210514, end: 20230625

REACTIONS (1)
  - Aortic valve disease [Recovered/Resolved]

NARRATIVE: CASE EVENT DATE: 20231006
